FAERS Safety Report 5080040-2 (Version None)
Quarter: 2006Q3

REPORT INFORMATION
  Report Type: 
  Country: None (occurrence: None)
  Receive Date: 20060810
  Receipt Date: 20060803
  Transmission Date: 20061208
  Serious: Yes (Other)
  Sender: FDA-Public Use
  Company Number: 2006095060

PATIENT
  Sex: Male
  Weight: 122.9248 kg

DRUGS (3)
  1. ZOLOFT [Suspect]
     Indication: DRUG USE FOR UNKNOWN INDICATION
     Dosage: 100 MG (50 MG, 2 IN 1 D), ORAL
     Route: 048
  2. BYETTA [Suspect]
     Indication: DIABETES MELLITUS NON-INSULIN-DEPENDENT
     Dosage: 10 MCG (5 MCG, 2 IN 1 D), SUBCUTANEOUS
     Route: 058
     Dates: start: 20060531
  3. GLIPIZIDE [Concomitant]

REACTIONS (7)
  - ABDOMINAL DISCOMFORT [None]
  - DECREASED APPETITE [None]
  - DIABETES MELLITUS NON-INSULIN-DEPENDENT [None]
  - FEELING ABNORMAL [None]
  - MACULAR DEGENERATION [None]
  - NAUSEA [None]
  - WEIGHT DECREASED [None]
